FAERS Safety Report 9006402 (Version 1)
Quarter: 2013Q1

REPORT INFORMATION
  Report Type: Spontaneous
  Country: US (occurrence: US)
  Receive Date: 20130110
  Receipt Date: 20130110
  Transmission Date: 20140127
  Serious: Yes (Other)
  Sender: FDA-Public Use
  Company Number: US-BAYER-2013-002649

PATIENT
  Age: 76 Year
  Sex: Female
  Weight: 59.41 kg

DRUGS (1)
  1. ALKA-SELTZER PLUS DAY COLD [Suspect]
     Indication: NASOPHARYNGITIS
     Dosage: 2 DF, ONCE
     Route: 048
     Dates: start: 20130103, end: 20130103

REACTIONS (2)
  - Choking [Recovered/Resolved]
  - Foreign body [Recovered/Resolved]
